FAERS Safety Report 13834789 (Version 2)
Quarter: 2017Q3

REPORT INFORMATION
  Report Type: Spontaneous
  Country: JP (occurrence: JP)
  Receive Date: 20170804
  Receipt Date: 20170811
  Transmission Date: 20171127
  Serious: No
  Sender: FDA-Public Use
  Company Number: JP-ROCHE-1970171

PATIENT
  Age: 68 Year
  Sex: Female

DRUGS (8)
  1. MYSLEE [Concomitant]
     Active Substance: ZOLPIDEM TARTRATE
     Dosage: THE FRACTIONATION DOSE FREQUENCY IS UNCERTAIN. ?DOSE INTERVAL UNCERTAINTY
     Route: 048
  2. VIVIANT [Concomitant]
     Active Substance: BAZEDOXIFENE
     Dosage: DOSAGE IS UNCERTAIN.
     Route: 065
     Dates: end: 20170722
  3. AZELNIDIPINE [Concomitant]
     Active Substance: AZELNIDIPINE
     Dosage: THE FRACTIONATION DOSE FREQUENCY IS UNCERTAIN. ?DOSE INTERVAL UNCERTAINTY
     Route: 065
     Dates: end: 2017
  4. BONVIVA [Suspect]
     Active Substance: IBANDRONATE SODIUM
     Indication: OSTEOPOROSIS
     Dosage: DOSAGE IS UNCERTAIN.
     Route: 042
     Dates: start: 20170622, end: 20170622
  5. SELBEX [Concomitant]
     Active Substance: TEPRENONE
     Dosage: DOSAGE IS UNCERTAIN.
     Route: 048
     Dates: start: 201707
  6. AZELNIDIPINE [Concomitant]
     Active Substance: AZELNIDIPINE
     Dosage: THE FRACTIONATION DOSE FREQUENCY IS UNCERTAIN. ?DOSE INTERVAL UNCERTAINTY
     Route: 065
     Dates: start: 201707
  7. PITAVASTATIN CALCIUM [Concomitant]
     Active Substance: PITAVASTATIN CALCIUM
     Dosage: DOSAGE IS UNCERTAIN.
     Route: 065
     Dates: end: 20170722
  8. ZOLPIDEM TARTRATE. [Concomitant]
     Active Substance: ZOLPIDEM TARTRATE

REACTIONS (6)
  - Abdominal discomfort [Unknown]
  - Pain [Recovering/Resolving]
  - Inflammation [Unknown]
  - Gait disturbance [Recovering/Resolving]
  - Decreased appetite [Unknown]
  - Pyrexia [Recovering/Resolving]

NARRATIVE: CASE EVENT DATE: 20170623
